FAERS Safety Report 11539043 (Version 1)
Quarter: 2015Q3

REPORT INFORMATION
  Report Type: Spontaneous
  Country: IN (occurrence: None)
  Receive Date: 20150922
  Receipt Date: 20150922
  Transmission Date: 20151125
  Serious: Yes (Other)
  Sender: FDA-Public Use
  Company Number: None

PATIENT
  Age: 17 Year
  Sex: Male
  Weight: 56 kg

DRUGS (4)
  1. FLUPRED EYE DROPS [Suspect]
     Active Substance: DIFLUPREDNATE
     Indication: CONJUNCTIVITIS
     Route: 047
     Dates: start: 20150910, end: 20150921
  2. EMU DROPS [Concomitant]
  3. TELEKAST [Concomitant]
  4. OPTIVE EYE DROP [Concomitant]

REACTIONS (2)
  - Glare [None]
  - Halo vision [None]

NARRATIVE: CASE EVENT DATE: 20150909
